FAERS Safety Report 4499402-7 (Version None)
Quarter: 2004Q4

REPORT INFORMATION
  Report Type: 
  Country: None (occurrence: None)
  Receive Date: 20041111
  Receipt Date: 20041105
  Transmission Date: 20050328
  Serious: Yes (Other)
  Sender: FDA-Public Use
  Company Number: US-MERCK-0411USA00948

PATIENT
  Age: 59 Year
  Sex: Female

DRUGS (4)
  1. VIOXX [Suspect]
     Indication: ARTHRITIS
     Route: 048
     Dates: start: 20010401, end: 20041001
  2. PREVACID [Concomitant]
     Route: 065
  3. LIPITOR [Concomitant]
     Route: 065
  4. PLETAL [Concomitant]
     Route: 065

REACTIONS (2)
  - DYSPHAGIA [None]
  - TRANSIENT ISCHAEMIC ATTACK [None]
